FAERS Safety Report 9981379 (Version 3)
Quarter: 2014Q1

REPORT INFORMATION
  Report Type: Spontaneous
  Country: JP (occurrence: JP)
  Receive Date: 20140307
  Receipt Date: 20140331
  Transmission Date: 20141002
  Serious: Yes (Hospitalization)
  Sender: FDA-Public Use
  Company Number: JP-JNJFOC-20140300534

PATIENT
  Age: 83 Year
  Sex: Male
  Weight: 60 kg

DRUGS (11)
  1. XARELTO [Suspect]
     Indication: ATRIAL FIBRILLATION
     Route: 048
  2. XARELTO [Suspect]
     Indication: CEREBROVASCULAR ACCIDENT PROPHYLAXIS
     Route: 048
  3. NIFESLOW [Concomitant]
     Indication: HYPERTENSION
     Route: 048
  4. URIEF [Concomitant]
     Route: 048
  5. CLARITHROMYCIN [Concomitant]
     Indication: INTERSTITIAL LUNG DISEASE
     Route: 048
  6. LEBELBON [Concomitant]
     Indication: INTERSTITIAL LUNG DISEASE
     Route: 048
  7. PREDONINE [Concomitant]
     Route: 048
  8. BIOFERMIN [Concomitant]
     Indication: DIARRHOEA
     Route: 048
  9. ALMYLAR [Concomitant]
     Indication: HYPERTENSION
     Route: 048
  10. DIAMOX [Concomitant]
     Indication: CARDIAC FAILURE CHRONIC
     Route: 048
  11. MAGNESIUM OXIDE [Concomitant]
     Route: 048

REACTIONS (1)
  - Interstitial lung disease [Recovering/Resolving]
